FAERS Safety Report 9102363 (Version 1)
Quarter: 2013Q1

REPORT INFORMATION
  Report Type: Spontaneous
  Country: US (occurrence: US)
  Receive Date: 20130218
  Receipt Date: 20130218
  Transmission Date: 20140127
  Serious: Yes (Death)
  Sender: FDA-Public Use
  Company Number: US-COVIDIEN/TYCO HEALTHCARE/MALLINCKRODT-T201300730

PATIENT
  Age: 55 Year
  Sex: Male

DRUGS (6)
  1. ROXICODONE [Suspect]
     Dosage: UNK
     Route: 048
  2. METHADOSE [Suspect]
     Route: 048
  3. ALPRAZOLAM [Suspect]
     Route: 048
  4. DIPHENHYDRAMINE [Suspect]
     Route: 048
  5. OLANZAPINE [Suspect]
     Route: 048
  6. ANTICONVULSANT (PYRROLIDINONE) [Suspect]
     Route: 048

REACTIONS (3)
  - Cardio-respiratory arrest [Fatal]
  - Cardiac arrest [None]
  - Respiratory arrest [None]
